FAERS Safety Report 9168806 (Version 1)
Quarter: 2013Q1

REPORT INFORMATION
  Report Type: Spontaneous
  Country: US (occurrence: None)
  Receive Date: 20130314
  Receipt Date: 20130314
  Transmission Date: 20140127
  Serious: Yes (Life-Threatening, Hospitalization)
  Sender: FDA-Public Use
  Company Number: None

PATIENT
  Age: 54 Year
  Sex: Female
  Weight: 91 kg

DRUGS (22)
  1. FENTANYL [Suspect]
     Indication: ANALGESIC THERAPY
     Route: 042
     Dates: start: 20130212, end: 20130213
  2. MIDAZOLAM [Suspect]
     Indication: SEDATION
     Route: 042
     Dates: start: 20130212, end: 20130214
  3. APAP [Concomitant]
  4. ACETAZOLAMIDE [Concomitant]
  5. ACYCLOVIR [Concomitant]
  6. ENOXAPARIN [Concomitant]
  7. ETOMIDATE [Concomitant]
  8. FENTANYL DRIP [Concomitant]
  9. FUROSEMIDE [Concomitant]
  10. IMI/CILE [Concomitant]
  11. DUONEB [Concomitant]
  12. KETEROLAC [Concomitant]
  13. LINEZOLID [Concomitant]
  14. METOPROLOL [Concomitant]
  15. METRONIDAZOLE [Concomitant]
  16. MIDAZOLAM DRIP [Concomitant]
  17. DANTOPRAZOLE [Concomitant]
  18. PIP/TAZO [Concomitant]
  19. KC1 40 MEQ [Concomitant]
  20. KC1 20MEQ [Concomitant]
  21. KCI 10 MEQ [Concomitant]
  22. VANCOMYCIN [Concomitant]

REACTIONS (2)
  - Product contamination [None]
  - Hyperpyrexia [None]
